FAERS Safety Report 10003525 (Version 4)
Quarter: 2014Q2

REPORT INFORMATION
  Report Type: Spontaneous
  Country: US (occurrence: US)
  Receive Date: 20140312
  Receipt Date: 20140516
  Transmission Date: 20141212
  Serious: Yes (Hospitalization, Other)
  Sender: FDA-Public Use
  Company Number: US-BAYER-2014-034861

PATIENT
  Age: 29 Year
  Sex: Female
  Weight: 68.03 kg

DRUGS (3)
  1. MIRENA [Suspect]
     Indication: CONTRACEPTION
     Dosage: 20 MCG/24HR, CONT
     Route: 015
     Dates: start: 20110810, end: 20121211
  2. PRENATAL VITAMINS [Concomitant]
  3. FLEXERIL [Concomitant]

REACTIONS (13)
  - Uterine perforation [None]
  - Post procedural discomfort [None]
  - Pain [None]
  - Device dislocation [None]
  - Pregnancy with contraceptive device [Recovered/Resolved]
  - Drug ineffective [None]
  - Device difficult to use [None]
  - Uterine haemorrhage [None]
  - Injury [None]
  - Depression [None]
  - Anxiety [None]
  - Stress [None]
  - Device issue [None]
